FAERS Safety Report 24091194 (Version 1)
Quarter: 2024Q3

REPORT INFORMATION
  Report Type: Spontaneous
  Country: US (occurrence: None)
  Receive Date: 20240713
  Receipt Date: 20240713
  Transmission Date: 20241017
  Serious: Yes (Disabling)
  Sender: Public
  Company Number: None

PATIENT
  Age: 74 Year
  Sex: Female

DRUGS (1)
  1. REGENER-EYES LITE [Suspect]
     Active Substance: GLYCERIN
     Indication: Optic neuropathy
     Dosage: 1 DROPP AT BEDTIME OPHTHALMIC
     Route: 047
     Dates: start: 20220228, end: 20220228

REACTIONS (6)
  - Rash [None]
  - Blindness [None]
  - Ocular hyperaemia [None]
  - Viral infection [None]
  - Vision blurred [None]
  - Economic problem [None]

NARRATIVE: CASE EVENT DATE: 20220228
